FAERS Safety Report 7588151-4 (Version None)
Quarter: 2011Q3

REPORT INFORMATION
  Report Type: 
  Country: None (occurrence: None)
  Receive Date: 20110705
  Receipt Date: 20101221
  Transmission Date: 20111222
  Serious: Yes (Hospitalization, Other)
  Sender: FDA-Public Use
  Company Number: US-BAYER-201038236NA

PATIENT
  Age: 25 Year
  Sex: Female
  Weight: 67.574 kg

DRUGS (9)
  1. MEPERIDINE HCL [Concomitant]
     Dosage: 50 MG, UNK
     Route: 048
     Dates: start: 20071026
  2. FLUCONAZOLE [Concomitant]
     Dosage: 150 MG, UNK
     Route: 048
     Dates: start: 20080303
  3. PROTONIX [Concomitant]
     Indication: GASTROOESOPHAGEAL REFLUX DISEASE
     Dosage: 40 MG, QD
     Route: 048
  4. ESTRADIOL [Concomitant]
  5. YAZ [Suspect]
     Indication: CONTRACEPTION
     Dosage: UNK
     Route: 048
     Dates: start: 20070401, end: 20080515
  6. CEFUROXIME [Concomitant]
     Dosage: 250 MG, UNK
     Route: 048
     Dates: start: 20080303
  7. CEPHALEXIN [Concomitant]
     Dosage: 500 MG, UNK
     Route: 048
     Dates: start: 20071026
  8. ADVIL LIQUI-GELS [Concomitant]
     Route: 048
  9. PROTONIX [Concomitant]
     Indication: ABDOMINAL PAIN UPPER

REACTIONS (4)
  - ABDOMINAL PAIN UPPER [None]
  - CHOLECYSTECTOMY [None]
  - ABDOMINAL PAIN [None]
  - BILIARY DYSKINESIA [None]
